FAERS Safety Report 11401873 (Version 2)
Quarter: 2015Q4

REPORT INFORMATION
  Report Type: Report from Study
  Country: US (occurrence: US)
  Receive Date: 20150821
  Receipt Date: 20151112
  Transmission Date: 20160304
  Serious: Yes (Other)
  Sender: FDA-Public Use
  Company Number: US-AMGEN-USASP2015085023

PATIENT
  Age: 57 Year
  Sex: Female

DRUGS (1)
  1. ENBREL [Suspect]
     Active Substance: ETANERCEPT
     Indication: RHEUMATOID ARTHRITIS
     Dosage: UNK
     Route: 065

REACTIONS (16)
  - Muscular weakness [Unknown]
  - Anti-cyclic citrullinated peptide antibody positive [Unknown]
  - Gait disturbance [Unknown]
  - Pain [Unknown]
  - Blood urea decreased [Unknown]
  - Vitamin D decreased [Unknown]
  - Rheumatoid factor increased [Unknown]
  - Mean cell haemoglobin decreased [Unknown]
  - Condition aggravated [Unknown]
  - Grip strength decreased [Unknown]
  - Complement factor increased [Unknown]
  - Arthralgia [Unknown]
  - Myalgia [Unknown]
  - Mean cell haemoglobin concentration decreased [Unknown]
  - Red cell distribution width increased [Unknown]
  - Hepatitis B [Unknown]

NARRATIVE: CASE EVENT DATE: 20150703
